FAERS Safety Report 8537844-0 (Version None)
Quarter: 2012Q3

REPORT INFORMATION
  Report Type: 
  Country: None (occurrence: None)
  Receive Date: 20120725
  Receipt Date: 20120720
  Transmission Date: 20120928
  Serious: Yes (Other)
  Sender: FDA-Public Use
  Company Number: NZ-ABBOTT-12P-118-0958678-00

PATIENT
  Age: 67 Year
  Sex: Male
  Weight: 112 kg

DRUGS (7)
  1. CYCLOSPORINE [Suspect]
     Indication: PSORIASIS
  2. ADALIMUMAB [Suspect]
     Indication: PRODUCT USED FOR UNKNOWN INDICATION
     Dosage: LOADING DOSE
  3. ADALIMUMAB [Suspect]
  4. ACITRETIN [Concomitant]
     Indication: PSORIASIS
  5. METHOTREXATE [Suspect]
     Indication: PSORIASIS
  6. HYDROXYUREA [Concomitant]
     Indication: PSORIASIS
  7. METFORMIN HYDROCHLORIDE [Concomitant]
     Indication: TYPE 2 DIABETES MELLITUS

REACTIONS (3)
  - SQUAMOUS CELL CARCINOMA [None]
  - KERATOACANTHOMA [None]
  - MALIGNANT MELANOMA [None]
